FAERS Safety Report 5378211-0 (Version None)
Quarter: 2007Q3

REPORT INFORMATION
  Report Type: 
  Country: None (occurrence: None)
  Receive Date: 20070705
  Receipt Date: 20070625
  Transmission Date: 20080115
  Serious: Yes (Hospitalization)
  Sender: FDA-Public Use
  Company Number: US-JNJFOC-20070601412

PATIENT
  Sex: Female
  Weight: 79.83 kg

DRUGS (7)
  1. RISPERDAL CONSTA [Suspect]
     Indication: PSYCHOTIC DISORDER
     Route: 030
  2. RISPERDAL CONSTA [Suspect]
     Indication: PARANOIA
     Route: 030
  3. RISPERDAL CONSTA [Suspect]
     Indication: DEMENTIA
     Route: 030
  4. LASIX [Concomitant]
  5. POTASSIUM CHLORIDE [Concomitant]
  6. VICODIN [Concomitant]
  7. TYLENOL [Concomitant]

REACTIONS (2)
  - ANAEMIA [None]
  - HAEMATURIA [None]
